FAERS Safety Report 21424195 (Version 1)
Quarter: 2022Q4

REPORT INFORMATION
  Report Type: Spontaneous
  Country: US (occurrence: None)
  Receive Date: 20221006
  Receipt Date: 20221006
  Transmission Date: 20230112
  Serious: Yes (unspecified)
  Sender: FDA-Public Use
  Company Number: None

PATIENT
  Age: 34 Year
  Sex: Female
  Weight: 76.5 kg

DRUGS (11)
  1. DIETARY SUPPLEMENT [Suspect]
     Active Substance: DIETARY SUPPLEMENT
     Indication: Drug detoxification
     Dates: start: 20210101, end: 20210630
  2. VITAMIN D3 [Concomitant]
     Active Substance: CHOLECALCIFEROL
  3. VITAMIN B [Concomitant]
     Active Substance: VITAMIN B
  4. liquid multivitamin [Concomitant]
  5. FCS II (natures sunshine) [Concomitant]
  6. raw thyroid [Concomitant]
  7. PROBIOTICS NOS [Concomitant]
     Active Substance: PROBIOTICS NOS
  8. SIG [Concomitant]
  9. OMEGA 3 [Concomitant]
     Active Substance: CAPSAICIN
  10. VANADIUM [Concomitant]
     Active Substance: VANADIUM
  11. INT (natures sunshine) [Concomitant]

REACTIONS (11)
  - Thyroid disorder [None]
  - Pancreatic disorder [None]
  - Lymphatic disorder [None]
  - Weight increased [None]
  - Hormone level abnormal [None]
  - Depression [None]
  - Anxiety [None]
  - Planning to become pregnant [None]
  - Fatigue [None]
  - Feeling abnormal [None]
  - Rash [None]
